FAERS Safety Report 20776753 (Version 2)
Quarter: 2022Q2

REPORT INFORMATION
  Report Type: Spontaneous
  Country: US (occurrence: US)
  Receive Date: 20220502
  Receipt Date: 20220516
  Transmission Date: 20220721
  Serious: Yes (Death, Other)
  Sender: FDA-Public Use
  Company Number: US-009507513-2204USA008230

PATIENT
  Age: 38 Year
  Sex: Male

DRUGS (1)
  1. ZEPATIER [Suspect]
     Active Substance: ELBASVIR\GRAZOPREVIR
     Indication: Hepatitis C
     Dosage: 100MG / 50 MG DAILY
     Route: 048
     Dates: start: 20220401, end: 20220413

REACTIONS (1)
  - Death [Fatal]

NARRATIVE: CASE EVENT DATE: 20220413
